FAERS Safety Report 5146644-3 (Version None)
Quarter: 2006Q4

REPORT INFORMATION
  Report Type: 
  Country: None (occurrence: None)
  Receive Date: 20061109
  Receipt Date: 20061103
  Transmission Date: 20070319
  Serious: Yes (Hospitalization, Other)
  Sender: FDA-Public Use
  Company Number: US-JNJFOC-20060902905

PATIENT
  Sex: Female
  Weight: 102.97 kg

DRUGS (7)
  1. REMICADE [Suspect]
     Route: 042
  2. REMICADE [Suspect]
     Route: 042
  3. REMICADE [Suspect]
     Indication: RHEUMATOID ARTHRITIS
     Route: 042
  4. IMURAN [Suspect]
     Indication: RHEUMATOID ARTHRITIS
  5. FELDENE [Concomitant]
  6. PROZAC [Concomitant]
  7. ULTRAM [Concomitant]

REACTIONS (2)
  - DRUG INEFFECTIVE [None]
  - PYREXIA [None]
